FAERS Safety Report 21513506 (Version 1)
Quarter: 2022Q4

REPORT INFORMATION
  Report Type: Report from Study
  Country: CL (occurrence: None)
  Receive Date: 20221027
  Receipt Date: 20221027
  Transmission Date: 20230113
  Serious: Yes (Other)
  Sender: FDA-Public Use
  Company Number: CL-Merck Healthcare KGaA-9359513

PATIENT
  Age: 13 Year
  Sex: Female

DRUGS (1)
  1. SAIZEN [Suspect]
     Active Substance: SOMATROPIN
     Indication: Turner^s syndrome
     Dosage: NEEDLES: 31G ALUETTA ULTRAFINE
     Route: 058
     Dates: start: 20221012

REACTIONS (5)
  - Syncope [Unknown]
  - Vomiting [Unknown]
  - Adverse drug reaction [Unknown]
  - Headache [Unknown]
  - Overdose [Unknown]

NARRATIVE: CASE EVENT DATE: 20221017
